FAERS Safety Report 10021552 (Version 1)
Quarter: 2014Q1

REPORT INFORMATION
  Report Type: Report from Study
  Country: CO (occurrence: CO)
  Receive Date: 20140319
  Receipt Date: 20140319
  Transmission Date: 20141002
  Serious: Yes (Other)
  Sender: FDA-Public Use
  Company Number: CO-SA-2013SA133572

PATIENT
  Age: 64 Year
  Sex: Female

DRUGS (6)
  1. LANTUS [Suspect]
     Indication: DIABETES MELLITUS
     Route: 058
     Dates: start: 201308
  2. LANTUS [Suspect]
     Indication: DIABETES MELLITUS
     Route: 058
  3. APIDRA [Suspect]
     Indication: DIABETES MELLITUS
     Dosage: 12 UNITS DAILY (3-6-3)
     Route: 058
     Dates: start: 201308
  4. APIDRA [Suspect]
     Indication: DIABETES MELLITUS
     Dosage: 5 U AM-4U PM
     Route: 058
  5. METFORMIN [Concomitant]
     Indication: DIABETES MELLITUS
     Route: 048
  6. LOSARTAN [Concomitant]
     Indication: HYPERTENSION
     Route: 048

REACTIONS (4)
  - Hypertensive crisis [Recovered/Resolved]
  - Hypoglycaemia [Recovered/Resolved]
  - Vision blurred [Recovered/Resolved]
  - Dizziness [Recovered/Resolved]
